FAERS Safety Report 9015538 (Version 2)
Quarter: 2013Q1

REPORT INFORMATION
  Report Type: Report from Study
  Country: JP (occurrence: JP)
  Receive Date: 20130116
  Receipt Date: 20130125
  Transmission Date: 20140127
  Serious: Yes (Hospitalization, Other)
  Sender: FDA-Public Use
  Company Number: JP-CELGENEUS-087-21660-11061677

PATIENT
  Age: 42 Year
  Sex: Female
  Weight: 60 kg

DRUGS (6)
  1. ABRAXANE [Suspect]
     Indication: BREAST CANCER METASTATIC
     Dosage: 410 MILLIGRAM
     Route: 041
     Dates: start: 20101018, end: 20101018
  2. ABRAXANE [Suspect]
     Dosage: 410 MILLIGRAM
     Route: 041
     Dates: start: 20101108, end: 20101108
  3. ABRAXANE [Suspect]
     Dosage: 410 MILLIGRAM
     Route: 041
     Dates: start: 20101129, end: 20110207
  4. ABRAXANE [Suspect]
     Dosage: 300 MILLIGRAM
     Route: 041
     Dates: start: 20110307, end: 20110425
  5. ABRAXANE [Suspect]
     Route: 050
     Dates: start: 20111102
  6. HALAVEN [Concomitant]
     Indication: PRODUCT USED FOR UNKNOWN INDICATION
     Route: 065
     Dates: start: 20111102

REACTIONS (5)
  - Neutropenia [Not Recovered/Not Resolved]
  - Neutrophil count decreased [Recovered/Resolved]
  - Neutrophil count decreased [Recovered/Resolved]
  - White blood cell count decreased [Recovered/Resolved]
  - White blood cell count decreased [Recovered/Resolved]
